FAERS Safety Report 8074193-1 (Version None)
Quarter: 2012Q1

REPORT INFORMATION
  Report Type: 
  Country: None (occurrence: None)
  Receive Date: 20120126
  Receipt Date: 20120123
  Transmission Date: 20120608
  Serious: Yes (Other)
  Sender: FDA-Public Use
  Company Number: GB-PFIZER INC-2010177137

PATIENT
  Age: 69 Year
  Sex: Male

DRUGS (13)
  1. ISOSORBIDE [Concomitant]
     Dosage: 10MG IN MORNING AND 20MG AT NIGHT
  2. TIOTROPIUM BROMIDE [Concomitant]
     Route: 055
  3. BISOPROLOL FUMARATE [Interacting]
     Indication: BLOOD PRESSURE INCREASED
     Dosage: 1.25 MG, 1X/DAY
  4. QUININE [Concomitant]
     Dosage: UNK
  5. RAMIPRIL [Suspect]
     Indication: BLOOD PRESSURE INCREASED
     Dosage: 1.25 MG, 1X/DAY
     Route: 048
  6. ISOSORBIDE [Concomitant]
     Dosage: UNK
  7. VENTOLIN [Concomitant]
     Dosage: 100 UG, UNK
     Route: 055
  8. ACETYLSALICYLIC ACID SRT [Interacting]
     Indication: MYOCARDIAL INFARCTION
  9. OMEPRAZOLE [Concomitant]
     Dosage: 20 MG, 1X/DAY
  10. SERETIDE [Concomitant]
     Dosage: 500 MG, 1X/DAY
  11. MELOXICAM [Interacting]
     Indication: PAIN
     Dosage: 7.5 MG, 1X/DAY
     Dates: start: 20100916
  12. ACETYLSALICYLIC ACID SRT [Interacting]
     Indication: CARDIAC ARREST
     Dosage: 75 MG, 1X/DAY
     Dates: start: 20060101
  13. STEROID ANTIBACTERIALS [Concomitant]
     Indication: PLEURISY
     Dosage: 500 MG, 1X/DAY

REACTIONS (9)
  - DIARRHOEA [None]
  - CONFUSIONAL STATE [None]
  - CHROMATURIA [None]
  - EYE MOVEMENT DISORDER [None]
  - DRUG INTERACTION [None]
  - SOMNOLENCE [None]
  - GAIT DISTURBANCE [None]
  - HALLUCINATION [None]
  - DELIRIUM [None]
